FAERS Safety Report 8832307 (Version 2)
Quarter: 2012Q4

REPORT INFORMATION
  Report Type: 
  Country: US (occurrence: US)
  Receive Date: 20121009
  Receipt Date: 20121022
  Transmission Date: 20130627
  Serious: Yes (Other)
  Sender: FDA-Public Use
  Company Number: US-009507513-1210USA003203

PATIENT
  Sex: Male

DRUGS (3)
  1. VICTRELIS [Suspect]
     Indication: HEPATITIS C
     Dosage: UNK
     Route: 048
     Dates: start: 20120511, end: 20121005
  2. PEGINTRON [Suspect]
     Indication: HEPATITIS C
     Dosage: UNK
     Dates: start: 20120413, end: 20121005
  3. RIBAVIRIN [Suspect]
     Dosage: 800 mg, UNK
     Route: 048
     Dates: end: 20121005

REACTIONS (6)
  - Anaemia [Unknown]
  - Somnolence [Unknown]
  - Amnesia [Unknown]
  - Therapy regimen changed [Unknown]
  - Fatigue [Unknown]
  - Therapeutic response decreased [Unknown]
